FAERS Safety Report 5882467-5 (Version None)
Quarter: 2008Q3

REPORT INFORMATION
  Report Type: 
  Country: None (occurrence: None)
  Receive Date: 20080913
  Receipt Date: 20080805
  Transmission Date: 20090109
  Serious: No
  Sender: FDA-Public Use
  Company Number: US-ABBOTT-08P-163-0469127-00

PATIENT
  Sex: Female
  Weight: 90.8 kg

DRUGS (8)
  1. HUMIRA [Suspect]
     Indication: PSORIASIS
     Route: 050
     Dates: start: 20080603
  2. PAROXETINE HCL [Concomitant]
     Indication: ANXIETY
     Route: 048
     Dates: start: 20030101
  3. BUPROPION HCL [Concomitant]
     Indication: DEPRESSION
     Dosage: 300 MG DAILY
     Route: 048
     Dates: start: 20030101
  4. PREGABALIN [Concomitant]
     Indication: PAIN
     Dosage: 50 MG DAILY
     Route: 048
     Dates: start: 20080701
  5. ESTRADIOL [Concomitant]
     Indication: HYSTERECTOMY
     Route: 048
     Dates: start: 19970101
  6. ESOMEPRAZOLE MAGNESIUM [Concomitant]
     Indication: GASTROOESOPHAGEAL REFLUX DISEASE
     Dosage: 40 MG DAILY
     Route: 048
  7. IBUPROFEN [Concomitant]
     Indication: FIBROMYALGIA
     Route: 048
     Dates: start: 20030101
  8. ALPRAZOLAM [Concomitant]
     Indication: ANXIETY
     Dosage: 10 MG AT NIGHT
     Route: 048

REACTIONS (3)
  - INJECTION SITE HAEMORRHAGE [None]
  - INJECTION SITE RASH [None]
  - PSORIASIS [None]
